FAERS Safety Report 5941788-8 (Version None)
Quarter: 2008Q4

REPORT INFORMATION
  Report Type: 
  Country: None (occurrence: None)
  Receive Date: 20081105
  Receipt Date: 20081029
  Transmission Date: 20090506
  Serious: Yes (Other)
  Sender: FDA-Public Use
  Company Number: PHHY2008JP26553

PATIENT

DRUGS (2)
  1. DIOVAN [Suspect]
     Route: 048
  2. ATELEC [Concomitant]

REACTIONS (1)
  - PARKINSONISM [None]
